FAERS Safety Report 15271982 (Version 1)
Quarter: 2018Q3

REPORT INFORMATION
  Report Type: Spontaneous
  Country: US (occurrence: US)
  Receive Date: 20180813
  Receipt Date: 20180813
  Transmission Date: 20181010
  Serious: Yes (Hospitalization)
  Sender: FDA-Public Use
  Company Number: US-PFIZER INC-2018192410

PATIENT
  Sex: Female

DRUGS (5)
  1. MINESSE [Suspect]
     Active Substance: ETHINYL ESTRADIOL\GESTODENE
     Dosage: UNK
  2. MENEST [Suspect]
     Active Substance: ESTROGENS, ESTERIFIED
     Indication: MALAISE
  3. MENEST [Suspect]
     Active Substance: ESTROGENS, ESTERIFIED
     Indication: HOT FLUSH
     Dosage: 1.25 MG, 1X/DAY
     Dates: end: 20180508
  4. MENEST [Suspect]
     Active Substance: ESTROGENS, ESTERIFIED
     Indication: NERVOUSNESS
  5. MENEST [Suspect]
     Active Substance: ESTROGENS, ESTERIFIED
     Indication: INSOMNIA

REACTIONS (8)
  - Blood test abnormal [Unknown]
  - Hot flush [Unknown]
  - Intentional product misuse [Unknown]
  - Insomnia [Unknown]
  - Multiple chemical sensitivity [Unknown]
  - Feeling abnormal [Unknown]
  - Malaise [Unknown]
  - Fibromyalgia [Unknown]
